FAERS Safety Report 9188191 (Version 1)
Quarter: 2013Q1

REPORT INFORMATION
  Report Type: Spontaneous
  Country: US (occurrence: US)
  Receive Date: 20130325
  Receipt Date: 20130325
  Transmission Date: 20140127
  Serious: No
  Sender: FDA-Public Use
  Company Number: US-PFIZER INC-2013091860

PATIENT
  Age: 75 Year
  Sex: Female
  Weight: 83.9 kg

DRUGS (1)
  1. PREMARIN VAGINAL CREAM [Suspect]
     Dosage: 1 MG, WEEKLY
     Route: 067

REACTIONS (2)
  - Vaginal infection [Unknown]
  - Drug administration error [Unknown]
